FAERS Safety Report 17550867 (Version 1)
Quarter: 2020Q1

REPORT INFORMATION
  Report Type: Spontaneous
  Country: HR (occurrence: HR)
  Receive Date: 20200317
  Receipt Date: 20200317
  Transmission Date: 20200409
  Serious: Yes (Other)
  Sender: FDA-Public Use
  Company Number: HR-MYLANLABS-2020M1029023

PATIENT
  Sex: Male

DRUGS (2)
  1. BUPRENORPHINE,NALOXONE MYLAN [Suspect]
     Active Substance: BUPRENORPHINE HYDROCHLORIDE\NALOXONE HYDROCHLORIDE
     Dosage: 16MG/4MG,QD
     Route: 048
     Dates: start: 2020
  2. BUPRENORPHINE,NALOXONE MYLAN [Suspect]
     Active Substance: BUPRENORPHINE HYDROCHLORIDE\NALOXONE HYDROCHLORIDE
     Indication: DRUG DEPENDENCE
     Dosage: 8 MG/2MG, QD
     Route: 048
     Dates: start: 202001

REACTIONS (2)
  - Malaise [Recovering/Resolving]
  - Drug ineffective [Not Recovered/Not Resolved]

NARRATIVE: CASE EVENT DATE: 202001
